FAERS Safety Report 4997227-7 (Version None)
Quarter: 2006Q2

REPORT INFORMATION
  Report Type: 
  Country: None (occurrence: None)
  Receive Date: 20060505
  Receipt Date: 20060505
  Transmission Date: 20061013
  Serious: Yes (Other)
  Sender: FDA-Public Use
  Company Number: None

PATIENT
  Sex: Male
  Weight: 77.1115 kg

DRUGS (1)
  1. OXYCONTIN [Suspect]
     Dosage: 80 MG    2
     Dates: start: 20051016, end: 20060504

REACTIONS (1)
  - INTENTIONAL DRUG MISUSE [None]
